FAERS Safety Report 10617857 (Version 1)
Quarter: 2014Q4

REPORT INFORMATION
  Report Type: Report from Study
  Country: ES (occurrence: ES)
  Receive Date: 20141201
  Receipt Date: 20141201
  Transmission Date: 20150529
  Serious: Yes (Other)
  Sender: FDA-Public Use
  Company Number: US-ASTRAZENECA-2014SE90839

PATIENT
  Sex: Female

DRUGS (1)
  1. SYNAGIS [Suspect]
     Active Substance: PALIVIZUMAB
     Indication: ANTIVIRAL PROPHYLAXIS
     Route: 030
     Dates: start: 20141027, end: 20141027

REACTIONS (3)
  - Irritability [Recovered/Resolved]
  - Decreased appetite [Recovered/Resolved]
  - Weight gain poor [Recovered/Resolved]

NARRATIVE: CASE EVENT DATE: 20141027
